FAERS Safety Report 8832879 (Version 1)
Quarter: 2012Q4

REPORT INFORMATION
  Report Type: Spontaneous
  Country: US (occurrence: None)
  Receive Date: 20121009
  Receipt Date: 20121009
  Transmission Date: 20130627
  Serious: Yes (Other)
  Sender: FDA-Public Use
  Company Number: None

PATIENT
  Age: 27 Year
  Sex: Female
  Weight: 47.63 kg

DRUGS (1)
  1. CLONAZEPAM [Suspect]
     Indication: ANXIETY
     Dosage: .25-.5 daily po
     Route: 048
     Dates: start: 20120419, end: 20120804

REACTIONS (12)
  - Dizziness [None]
  - Anxiety [None]
  - Obsessive thoughts [None]
  - Insomnia [None]
  - Mania [None]
  - Fear [None]
  - Suicidal ideation [None]
  - Cognitive disorder [None]
  - Memory impairment [None]
  - Disturbance in attention [None]
  - Impaired work ability [None]
  - Impaired driving ability [None]
